FAERS Safety Report 12320434 (Version 1)
Quarter: 2016Q2

REPORT INFORMATION
  Report Type: Spontaneous
  Country: US (occurrence: US)
  Receive Date: 20160501
  Receipt Date: 20160501
  Transmission Date: 20160815
  Serious: Yes (Other)
  Sender: FDA-Public Use
  Company Number: US-TEVA-655674USA

PATIENT
  Age: 16 Year
  Sex: Female

DRUGS (2)
  1. PROPOFOL. [Suspect]
     Active Substance: PROPOFOL
     Dosage: 74MCG/KG/MIN
     Route: 050
  2. VECURONIUM BROMIDE. [Concomitant]
     Active Substance: VECURONIUM BROMIDE
     Dosage: 5MG
     Route: 065

REACTIONS (1)
  - Gaze palsy [Recovered/Resolved]
